FAERS Safety Report 9838734 (Version 2)
Quarter: 2014Q1

REPORT INFORMATION
  Report Type: Spontaneous
  Country: CA (occurrence: CA)
  Receive Date: 20140123
  Receipt Date: 20140128
  Transmission Date: 20141002
  Serious: Yes (Hospitalization)
  Sender: FDA-Public Use
  Company Number: CA-BAYER-2014-011818

PATIENT
  Sex: Female

DRUGS (1)
  1. ALEVE [Suspect]
     Indication: ARTHRALGIA
     Dosage: DAILY DOSE

REACTIONS (3)
  - Haemorrhage [None]
  - Asthenia [None]
  - Incorrect drug administration duration [None]
